FAERS Safety Report 5248466-1 (Version None)
Quarter: 2007Q1

REPORT INFORMATION
  Report Type: 
  Country: None (occurrence: None)
  Receive Date: 20070227
  Receipt Date: 20070213
  Transmission Date: 20070707
  Serious: Yes (Death, Hospitalization, Other)
  Sender: FDA-Public Use
  Company Number: US-PFIZER INC-2005073824

PATIENT
  Sex: Female
  Weight: 120.2 kg

DRUGS (6)
  1. BEXTRA [Suspect]
  2. ZOCOR [Concomitant]
     Route: 065
  3. LISINOPRIL [Concomitant]
     Route: 065
  4. LABETALOL HCL [Concomitant]
     Route: 065
  5. LANTUS [Concomitant]
     Route: 065
  6. ALL OTHER THERAPEUTIC PRODUCTS [Concomitant]
     Route: 065

REACTIONS (7)
  - CARDIAC DISORDER [None]
  - DIABETES MELLITUS [None]
  - DYSPHAGIA [None]
  - HYPERTENSION [None]
  - OBESITY [None]
  - PNEUMONIA ASPIRATION [None]
  - RESPIRATORY FAILURE [None]
